FAERS Safety Report 6210584-9 (Version None)
Quarter: 2009Q2

REPORT INFORMATION
  Report Type: 
  Country: None (occurrence: None)
  Receive Date: 20090601
  Receipt Date: 20090525
  Transmission Date: 20091009
  Serious: Yes (Other)
  Sender: FDA-Public Use
  Company Number: B0553109A

PATIENT
  Sex: Male

DRUGS (8)
  1. KIVEXA [Suspect]
     Indication: HIV INFECTION
     Route: 048
     Dates: start: 20050713, end: 20070115
  2. TELZIR [Suspect]
     Indication: HIV INFECTION
     Route: 048
     Dates: start: 20050530, end: 20071115
  3. TRIZIVIR [Suspect]
     Indication: HIV INFECTION
     Route: 048
     Dates: start: 20070125, end: 20071115
  4. NORVIR [Suspect]
     Indication: HIV INFECTION
     Route: 048
     Dates: start: 20050530
  5. EPIVIR [Suspect]
     Indication: HIV INFECTION
     Route: 065
     Dates: start: 19990515, end: 20050713
  6. VIRACEPT [Suspect]
     Route: 065
     Dates: start: 19990515, end: 20050530
  7. ZERIT [Suspect]
     Indication: HIV INFECTION
     Route: 065
     Dates: start: 19990515, end: 20050530
  8. ZIAGEN [Concomitant]
     Indication: HIV INFECTION
     Route: 065
     Dates: start: 20050530, end: 20050713

REACTIONS (2)
  - ACUTE MYOCARDIAL INFARCTION [None]
  - VIROLOGIC FAILURE [None]
